FAERS Safety Report 17840800 (Version 1)
Quarter: 2020Q2

REPORT INFORMATION
  Report Type: Spontaneous
  Country: BE (occurrence: BE)
  Receive Date: 20200529
  Receipt Date: 20200529
  Transmission Date: 20200714
  Serious: Yes (Hospitalization)
  Sender: FDA-Public Use
  Company Number: BE-TEVA-2020-BE-1240330

PATIENT
  Age: 58 Year
  Sex: Male
  Weight: 110 kg

DRUGS (25)
  1. CALCIUM FOLINATE [Suspect]
     Active Substance: LEUCOVORIN CALCIUM
     Dosage: 926 MG, QCY
     Route: 042
     Dates: start: 20190917, end: 20190917
  2. IMODIUM [Concomitant]
     Active Substance: LOPERAMIDE HYDROCHLORIDE
     Indication: DIARRHOEA
  3. OXALIPLATIN. [Suspect]
     Active Substance: OXALIPLATIN
     Indication: PANCREATIC CARCINOMA METASTATIC
     Dosage: 197 MG, QCY
     Route: 042
     Dates: start: 20190508, end: 20190508
  4. LASIX [Concomitant]
     Active Substance: FUROSEMIDE
     Indication: COUGH
     Dosage: UNK, THERAPY END DATE: ASKED BUT UNKNOWN
     Dates: start: 20190703
  5. FLUCONAZOL [Concomitant]
     Active Substance: FLUCONAZOLE
     Indication: INTERTRIGO
     Dosage: UNK
     Dates: start: 20190524
  6. UNI DIAMICRON [Concomitant]
     Active Substance: GLICLAZIDE
     Indication: DIABETES MELLITUS
     Dosage: UNK, THERAPY START DATE: ASKED BUT UNKNOWN
  7. FRAXIPARINE [Concomitant]
     Active Substance: NADROPARIN CALCIUM
     Indication: PULMONARY EMBOLISM
     Dosage: UNK, THERAPY START DATE: ASKED BUT UNKNOWN, THERAPY END DATE: ASKED BUT UNKNOWN
  8. FLUOROURACIL. [Suspect]
     Active Substance: FLUOROURACIL
     Indication: PANCREATIC CARCINOMA METASTATIC
     Dosage: 926 MG, QCY
     Route: 040
     Dates: start: 20190508, end: 20190919
  9. FLUOROURACIL. [Suspect]
     Active Substance: FLUOROURACIL
     Dosage: 5556 MG, QCY
     Route: 042
     Dates: start: 20190508, end: 20190919
  10. FLAMMAZINE [Concomitant]
     Active Substance: SILVER SULFADIAZINE
     Indication: INTERTRIGO
     Dosage: UNK, THERAPY END DATE: ASKED BUT UNKNOWN
     Dates: start: 20190527
  11. DAFALGAN [Concomitant]
     Active Substance: ACETAMINOPHEN
     Indication: ABDOMINAL PAIN
     Dosage: UNK, THERAPY START DATE: ASKED BUT UNKNOWN, THERAPY END DATE: ASKED BUT UNKNOWN
  12. ALOXI [Concomitant]
     Active Substance: PALONOSETRON HYDROCHLORIDE
     Indication: PROPHYLAXIS
     Dosage: UNK, THERAPY END DATE: ASKED BUT UNKNOWN
     Dates: start: 20190508
  13. NYSTATINE [Concomitant]
     Indication: PROPHYLAXIS
     Dosage: UNK, THERAPY END DATE: ASKED BUT UNKNOWN
     Dates: start: 20190508
  14. NEULASTA [Concomitant]
     Active Substance: PEGFILGRASTIM
     Indication: NEUTROPENIA
     Dosage: UNK THERAPY END DATE: ASKED BUT UNKNOWN
     Dates: start: 20190802
  15. IMODIUM [Concomitant]
     Active Substance: LOPERAMIDE HYDROCHLORIDE
     Indication: DIARRHOEA
     Dosage: UNK
     Dates: start: 20190518
  16. DAKTARIN [MICONAZOLE] [Concomitant]
     Active Substance: MICONAZOLE
     Indication: COUGH
     Dosage: UNK, THERAPY START DATE: ASKED BUT UNKNOWN, THERAPY END DATE: ASKED BUT UNKNOWN
  17. MAGNESIUM CITRATE. [Concomitant]
     Active Substance: MAGNESIUM CITRATE
     Indication: HYPOMAGNESAEMIA
     Dosage: UNK
     Dates: start: 20190508
  18. OXALIPLATIN. [Suspect]
     Active Substance: OXALIPLATIN
     Dosage: 197 MG, QCY
     Route: 042
     Dates: start: 20190813, end: 20190813
  19. BISOPROLOL [Concomitant]
     Active Substance: BISOPROLOL
     Indication: ATRIAL FIBRILLATION
     Dosage: UNK
     Dates: start: 20190508
  20. ZYLORIC [Concomitant]
     Active Substance: ALLOPURINOL
     Indication: GOUT
     Dosage: UNK, THERAPY START DATE: ASKED BUT UNKNOWN, THERAPY END DATE: ASKED BUT UNKNOWN
  21. CALCIUM FOLINATE [Suspect]
     Active Substance: LEUCOVORIN CALCIUM
     Indication: PANCREATIC CARCINOMA METASTATIC
     Dosage: 926 MG, QCY
     Route: 042
     Dates: start: 20190508, end: 20190508
  22. SOLU-MEDROL [Concomitant]
     Active Substance: METHYLPREDNISOLONE SODIUM SUCCINATE
     Indication: PROPHYLAXIS
     Dosage: UNK, THERAPY END DATE: ASKED BUT UNKNOWN
     Dates: start: 20190508
  23. METFORMAX [Concomitant]
     Active Substance: METFORMIN HYDROCHLORIDE
     Indication: DIABETES MELLITUS
     Dosage: UNK, THERAPY START DATE: ASKED BUT UNKNOWN
  24. PANTOPRAZOLE [Concomitant]
     Active Substance: PANTOPRAZOLE
     Indication: ABDOMINAL DISCOMFORT
     Dosage: THERAPY START DATE: ASKED BUT UNKNOWN, THERAPY END DATE: ASKED BUT UNKNOWN
  25. PERIO AID [CHLORHEXIDINE GLUCONATE] [Concomitant]
     Indication: PROPHYLAXIS
     Dosage: UNK, THERAPY END DATE: ASKED BUT UNKNOWN
     Dates: start: 20190508

REACTIONS (3)
  - Weight increased [Unknown]
  - Mobility decreased [Unknown]
  - Generalised oedema [Not Recovered/Not Resolved]

NARRATIVE: CASE EVENT DATE: 20191001
